FAERS Safety Report 8272749-4 (Version None)
Quarter: 2012Q2

REPORT INFORMATION
  Report Type: 
  Country: None (occurrence: None)
  Receive Date: 20120411
  Receipt Date: 20120330
  Transmission Date: 20120825
  Serious: Yes (Death, Life-Threatening)
  Sender: FDA-Public Use
  Company Number: FR-BRISTOL-MYERS SQUIBB COMPANY-16494221

PATIENT
  Age: 82 Year
  Sex: Female

DRUGS (21)
  1. PREDNISOLONE [Concomitant]
  2. IMODIUM [Concomitant]
  3. VITAMIN B1 TAB [Concomitant]
  4. VITAMIN B6 [Concomitant]
  5. ALDALIX [Concomitant]
  6. PENTASA [Concomitant]
     Dosage: SUPPOSITORIES
  7. ASPIRIN [Concomitant]
  8. CALCIUM GLUCONATE [Concomitant]
  9. ALUMINUM HYDROXIDE AND MAGNESIUM TRISILICATE [Concomitant]
  10. BRICANYL [Concomitant]
  11. CERNEVIT-12 [Concomitant]
  12. CITALOPRAM HYDROBROMIDE [Suspect]
     Indication: DEPRESSION
     Route: 048
     Dates: start: 20120119, end: 20120210
  13. FLUTICASONE PROPIONATE/SALMETEROL [Concomitant]
  14. PHOCYTAN [Concomitant]
  15. MAGNESIUM SULFATE [Concomitant]
  16. ASCORBIC ACID [Concomitant]
  17. MEGACE [Suspect]
     Indication: DECREASED APPETITE
     Dosage: 1DF:1TAB 3,4FEB12-5FEB12,3TABS 6,7FEB12-9FEB12
     Route: 048
     Dates: start: 20120203, end: 20120209
  18. SINGULAIR [Concomitant]
  19. ATROVENT [Concomitant]
  20. NEXIUM [Concomitant]
     Dates: start: 20111101
  21. LOVENOX [Concomitant]
     Dosage: 1DF:.4 UNIT NOS

REACTIONS (1)
  - THROMBOCYTOPENIA [None]
